FAERS Safety Report 8107493-7 (Version None)
Quarter: 2012Q1

REPORT INFORMATION
  Report Type: 
  Country: None (occurrence: None)
  Receive Date: 20120202
  Receipt Date: 20120123
  Transmission Date: 20120608
  Serious: Yes (Death)
  Sender: FDA-Public Use
  Company Number: US-ROCHE-1027872

PATIENT
  Sex: Female

DRUGS (8)
  1. AVASTIN [Suspect]
     Indication: BREAST CANCER METASTATIC
     Dates: start: 20091015
  2. PROCRIT [Concomitant]
  3. ZOMETA [Concomitant]
     Indication: BREAST CANCER METASTATIC
  4. DURAGESIC-100 [Concomitant]
  5. KAPIDEX [Concomitant]
  6. GEMZAR [Suspect]
     Indication: PRODUCT USED FOR UNKNOWN INDICATION
     Dates: start: 20091015
  7. HERCEPTIN [Suspect]
     Indication: BREAST CANCER METASTATIC
     Route: 042
     Dates: start: 20070102
  8. MARINOL (UNITED STATES) [Concomitant]

REACTIONS (1)
  - DEATH [None]
